FAERS Safety Report 5360360-4 (Version None)
Quarter: 2007Q2

REPORT INFORMATION
  Report Type: 
  Country: None (occurrence: None)
  Receive Date: 20070614
  Receipt Date: 20070606
  Transmission Date: 20071010
  Serious: Yes (Hospitalization)
  Sender: FDA-Public Use
  Company Number: 2007SP003550

PATIENT
  Age: 51 Year
  Sex: Female
  Weight: 91.173 kg

DRUGS (8)
  1. PEG-INTRON [Suspect]
     Indication: HEPATITIS C
     Dosage: 120 MCG; QW; SC
     Route: 058
     Dates: start: 20070123, end: 20070416
  2. REBETOL [Suspect]
     Indication: HEPATITIS C
     Dosage: SEE IMAGE
     Route: 048
     Dates: start: 20070123, end: 20070416
  3. REBETOL [Suspect]
     Indication: HEPATITIS C
     Dosage: SEE IMAGE
     Route: 048
     Dates: start: 20070123, end: 20070416
  4. ACCUPRIL [Concomitant]
  5. CLARITIN [Concomitant]
  6. EFFEXOR [Concomitant]
  7. INDERALL [Concomitant]
  8. SPIRIVA [Concomitant]

REACTIONS (22)
  - ANXIETY [None]
  - BURNING SENSATION [None]
  - CANDIDIASIS [None]
  - CARDIAC FAILURE CONGESTIVE [None]
  - CATHETER SITE HAEMATOMA [None]
  - CATHETER SITE PAIN [None]
  - CHEST DISCOMFORT [None]
  - CHEST PAIN [None]
  - DEATH OF RELATIVE [None]
  - FOOD POISONING [None]
  - GROIN PAIN [None]
  - HEADACHE [None]
  - INFLUENZA LIKE ILLNESS [None]
  - LYMPH NODE PAIN [None]
  - LYMPHADENOPATHY [None]
  - NASOPHARYNGITIS [None]
  - POST PROCEDURAL COMPLICATION [None]
  - PROCEDURAL PAIN [None]
  - RASH PRURITIC [None]
  - SCAR [None]
  - URINARY BLADDER HAEMORRHAGE [None]
  - URINARY TRACT INFECTION [None]
